FAERS Safety Report 9888329 (Version 3)
Quarter: 2014Q1

REPORT INFORMATION
  Report Type: Spontaneous
  Country: US (occurrence: US)
  Receive Date: 20140211
  Receipt Date: 20140307
  Transmission Date: 20141002
  Serious: No
  Sender: FDA-Public Use
  Company Number: US-PFIZER INC-2014033555

PATIENT
  Sex: Female

DRUGS (2)
  1. CALAN SR [Suspect]
     Indication: CLUSTER HEADACHE
     Dosage: 180 MG, UNK
  2. CALAN SR [Suspect]
     Indication: CARDIAC DISORDER
     Dosage: 240 MG, UNK

REACTIONS (6)
  - Off label use [Unknown]
  - Drug hypersensitivity [Unknown]
  - Pharyngeal disorder [Unknown]
  - Pharyngeal ulceration [Unknown]
  - Throat irritation [Unknown]
  - Drug ineffective [Unknown]
